FAERS Safety Report 4485902-2 (Version None)
Quarter: 2004Q4

REPORT INFORMATION
  Report Type: 
  Country: None (occurrence: None)
  Receive Date: 20041021
  Receipt Date: 20041006
  Transmission Date: 20050328
  Serious: Yes (Other)
  Sender: FDA-Public Use
  Company Number: 200410388BYL

PATIENT
  Age: 28 Year
  Sex: Male

DRUGS (8)
  1. GAMIMUNE N 5% [Suspect]
     Dosage: 30 G, TOTAL, DAILY
     Dates: start: 20040708, end: 20040712
  2. GAMIMUNE N 5% [Suspect]
  3. GAMIMUNE N 5% [Suspect]
  4. GAMIMUNE N 5% [Suspect]
  5. ADONA (AC-17) [Concomitant]
  6. VITAMIN C [Concomitant]
  7. PROPLEX [Concomitant]
  8. TRANSAMIN [Concomitant]

REACTIONS (1)
  - FACTOR VIII INHIBITION [None]
